FAERS Safety Report 5325964-3 (Version None)
Quarter: 2007Q2

REPORT INFORMATION
  Report Type: 
  Country: None (occurrence: None)
  Receive Date: 20070510
  Receipt Date: 20070430
  Transmission Date: 20071010
  Serious: Yes (Death)
  Sender: FDA-Public Use
  Company Number: 2007S1000184

PATIENT
  Age: 44 Year
  Sex: Female
  Weight: 263.64 kg

DRUGS (1)
  1. CUBICIN [Suspect]
     Indication: CELLULITIS
     Dosage: 4 MG/KG; Q48H
     Dates: start: 20070404, end: 20070412

REACTIONS (3)
  - RENAL FAILURE [None]
  - SEPTIC SHOCK [None]
  - WHITE BLOOD CELL COUNT INCREASED [None]
